FAERS Safety Report 6024711-X (Version None)
Quarter: 2008Q4

REPORT INFORMATION
  Report Type: 
  Country: None (occurrence: None)
  Receive Date: 20081231
  Receipt Date: 20081223
  Transmission Date: 20090506
  Serious: Yes (Other)
  Sender: FDA-Public Use
  Company Number: CH-NOVOPROD-282684

PATIENT
  Age: 46 Year
  Sex: Male
  Weight: 79 kg

DRUGS (11)
  1. ACTRAPID [Suspect]
     Indication: TYPE 2 DIABETES MELLITUS
     Dosage: UNKNOWN
     Route: 058
     Dates: start: 20080504
  2. ENALAPRIL MALEATE [Suspect]
     Dosage: 5 MG, QD
     Route: 048
     Dates: start: 20080504, end: 20080504
  3. METOPROLOLO [Concomitant]
     Dosage: 50 MG, QD
     Route: 048
     Dates: start: 20080504
  4. HEPARIN [Concomitant]
     Dosage: UNKNOWN
     Route: 042
     Dates: start: 20080504
  5. RANITIDINE [Concomitant]
     Dosage: 150 MG, QD
     Route: 048
     Dates: start: 20080504
  6. BROMAZEPAN [Concomitant]
     Dosage: 2 X 1.5 MG
     Route: 048
     Dates: start: 20080504
  7. ATORVASTATIN CALCIUM [Concomitant]
     Dosage: 40 MG, QD
     Route: 048
     Dates: start: 20080504
  8. LEVOCETIRIZINE [Concomitant]
     Dosage: 5 MG/D
     Dates: start: 20080504
  9. CLOPIDOGREL [Concomitant]
     Dosage: UNKNOWN
     Dates: start: 20080505
  10. ASPIRIN [Concomitant]
     Dosage: 100 MG, QD
     Dates: start: 20080505
  11. LORAZEPAM [Concomitant]
     Dosage: UNKNOWN

REACTIONS (2)
  - ANGIOEDEMA [None]
  - RASH MACULO-PAPULAR [None]
